FAERS Safety Report 8107392-0 (Version None)
Quarter: 2012Q1

REPORT INFORMATION
  Report Type: 
  Country: None (occurrence: None)
  Receive Date: 20120202
  Receipt Date: 20120126
  Transmission Date: 20120608
  Serious: Yes (Death)
  Sender: FDA-Public Use
  Company Number: US-SANOFI-AVENTIS-2012SA005846

PATIENT
  Age: 66 Year
  Sex: Male

DRUGS (3)
  1. ELOXATIN [Suspect]
     Route: 041
     Dates: start: 20111201, end: 20111201
  2. ELOXATIN [Suspect]
     Route: 041
  3. ELOXATIN [Suspect]
     Route: 041

REACTIONS (1)
  - DEATH [None]
